FAERS Safety Report 22212296 (Version 1)
Quarter: 2023Q2

REPORT INFORMATION
  Report Type: Other
  Country: None (occurrence: IT)
  Receive Date: 20230414
  Receipt Date: 20230414
  Transmission Date: 20230721
  Serious: Yes (Hospitalization)
  Sender: FDA-Public Use
  Company Number: IT-Nova Laboratories Limited-2140348

PATIENT
  Age: 11 Year
  Sex: Male

DRUGS (13)
  1. PURIXAN [Suspect]
     Active Substance: MERCAPTOPURINE
     Indication: Precursor T-lymphoblastic lymphoma/leukaemia
     Route: 048
     Dates: start: 202010
  2. METHOTREXATE [Suspect]
     Active Substance: METHOTREXATE
     Route: 037
     Dates: start: 202010
  3. DAUNORUBICIN [Suspect]
     Active Substance: DAUNORUBICIN
     Route: 042
     Dates: start: 202010
  4. VINCRISTINE [Suspect]
     Active Substance: VINCRISTINE
     Route: 042
     Dates: start: 2020
  5. VINCRISTINE [Suspect]
     Active Substance: VINCRISTINE
     Route: 042
     Dates: start: 2020
  6. PREDNISONE [Suspect]
     Active Substance: PREDNISONE
     Route: 042
  7. PREDNISONE [Suspect]
     Active Substance: PREDNISONE
     Route: 048
     Dates: start: 2020
  8. CYTARABINE [Suspect]
     Active Substance: CYTARABINE
     Route: 042
     Dates: start: 202010
  9. CYCLOPHOSPHAMIDE [Suspect]
     Active Substance: CYCLOPHOSPHAMIDE
     Route: 042
     Dates: start: 202010
  10. SULFAMETHOXAZOLE\TRIMETHOPRIM [Concomitant]
     Active Substance: SULFAMETHOXAZOLE\TRIMETHOPRIM
     Dates: start: 2020
  11. SULFAMETHOXAZOLE\TRIMETHOPRIM [Concomitant]
     Active Substance: SULFAMETHOXAZOLE\TRIMETHOPRIM
  12. PEGASPARGASE [Concomitant]
     Active Substance: PEGASPARGASE
     Dates: start: 202010
  13. ACYCLOVIR [Concomitant]
     Active Substance: ACYCLOVIR
     Dates: start: 2020

REACTIONS (6)
  - COVID-19 [Recovered/Resolved]
  - Antithrombin III deficiency [Unknown]
  - Immunosuppression [Unknown]
  - Pancreatitis acute [Unknown]
  - Hypertransaminasaemia [Unknown]
  - Off label use [None]

NARRATIVE: CASE EVENT DATE: 20200101
